FAERS Safety Report 5595515-7 (Version None)
Quarter: 2007Q4

REPORT INFORMATION
  Report Type: 
  Country: None (occurrence: None)
  Receive Date: 20071218
  Receipt Date: 20070702
  Transmission Date: 20080405
  Serious: Yes (Other)
  Sender: FDA-Public Use
  Company Number: 2007055789

PATIENT
  Age: 39 Year
  Sex: Female

DRUGS (2)
  1. BEXTRA [Suspect]
     Indication: BACK PAIN
     Dosage: 20 MG (10 MG, 2 IN 1 D)
     Dates: start: 20040625
  2. BEXTRA [Suspect]
     Indication: NECK PAIN
     Dosage: 20 MG (10 MG, 2 IN 1 D)
     Dates: start: 20040625

REACTIONS (2)
  - ANXIETY [None]
  - DEEP VEIN THROMBOSIS [None]
